FAERS Safety Report 8478219-2 (Version None)
Quarter: 2012Q2

REPORT INFORMATION
  Report Type: 
  Country: None (occurrence: None)
  Receive Date: 20120629
  Receipt Date: 20120627
  Transmission Date: 20120825
  Serious: Yes (Death, Hospitalization, Other)
  Sender: FDA-Public Use
  Company Number: PHHY2012GR042412

PATIENT
  Sex: Female

DRUGS (4)
  1. AFINITOR [Suspect]
     Indication: BREAST CANCER
     Dosage: 10 MG, QD
     Route: 048
     Dates: start: 20120410, end: 20120516
  2. AFINITOR [Suspect]
     Dosage: 10 MG, QD
     Route: 048
     Dates: start: 20120606
  3. AROMASIN [Concomitant]
     Indication: BREAST CANCER
     Dosage: 1 DF, QD
     Dates: start: 20120410
  4. KONAKION [Concomitant]
     Dosage: 10 MG, UNK

REACTIONS (13)
  - NEOPLASM PROGRESSION [None]
  - GENERAL PHYSICAL HEALTH DETERIORATION [None]
  - DYSPNOEA [None]
  - ASTHENIA [None]
  - VOMITING [None]
  - OLIGURIA [None]
  - NAUSEA [None]
  - DECREASED APPETITE [None]
  - RENAL FAILURE ACUTE [None]
  - THROMBOCYTOPENIA [None]
  - APHAGIA [None]
  - METABOLIC ACIDOSIS [None]
  - NEOPLASM MALIGNANT [None]
